FAERS Safety Report 22060175 (Version 1)
Quarter: 2023Q1

REPORT INFORMATION
  Report Type: Spontaneous
  Country: US (occurrence: None)
  Receive Date: 20230302
  Receipt Date: 20230302
  Transmission Date: 20230418
  Serious: Yes (Hospitalization, Disabling, Other)
  Sender: FDA-Public Use
  Company Number: None

PATIENT
  Age: 77 Year
  Sex: Male
  Weight: 85.5 kg

DRUGS (11)
  1. LUPRON [Suspect]
     Active Substance: LEUPROLIDE ACETATE
     Indication: Prostate cancer
     Dosage: OTHER FREQUENCY : EVERY 6 MOS;?
     Route: 030
     Dates: end: 20220901
  2. LISINOPRIL [Concomitant]
     Active Substance: LISINOPRIL
  3. METFORMIN [Concomitant]
     Active Substance: METFORMIN HYDROCHLORIDE
  4. LOVASTATIN [Concomitant]
     Active Substance: LOVASTATIN
  5. PLAVIX [Concomitant]
     Active Substance: CLOPIDOGREL BISULFATE
  6. SOLFENACIN [Concomitant]
  7. ALENDRONATE [Concomitant]
     Active Substance: ALENDRONATE SODIUM
  8. ASPIRIN [Concomitant]
     Active Substance: ASPIRIN
  9. CALCIUM [Concomitant]
     Active Substance: CALCIUM
  10. VITAMIN B12 [Concomitant]
     Active Substance: CYANOCOBALAMIN
  11. VITAMIN D3 [Concomitant]
     Active Substance: CHOLECALCIFEROL

REACTIONS (3)
  - Fatigue [None]
  - Balance disorder [None]
  - Exercise tolerance decreased [None]

NARRATIVE: CASE EVENT DATE: 20210301
